FAERS Safety Report 8015404-8 (Version None)
Quarter: 2011Q4

REPORT INFORMATION
  Report Type: 
  Country: None (occurrence: None)
  Receive Date: 20111230
  Receipt Date: 20111223
  Transmission Date: 20120403
  Serious: Yes (Death)
  Sender: FDA-Public Use
  Company Number: US-BRISTOL-MYERS SQUIBB COMPANY-16317505

PATIENT
  Age: 47 Year
  Sex: Female

DRUGS (4)
  1. NADOLOL [Suspect]
     Route: 065
  2. SILDENAFIL [Suspect]
     Route: 065
  3. QUINAPRIL HCL [Suspect]
     Route: 065
  4. ACETAMINOPHEN [Suspect]
     Route: 065

REACTIONS (1)
  - COMPLETED SUICIDE [None]
